FAERS Safety Report 6262518-9 (Version None)
Quarter: 2009Q3

REPORT INFORMATION
  Report Type: 
  Country: None (occurrence: None)
  Receive Date: 20090709
  Receipt Date: 20090630
  Transmission Date: 20100115
  Serious: Yes (Other)
  Sender: FDA-Public Use
  Company Number: US-ELI_LILLY_AND_COMPANY-US200905002605

PATIENT
  Sex: Female

DRUGS (5)
  1. BYETTA [Suspect]
     Indication: TYPE 2 DIABETES MELLITUS
     Dosage: 5 UG, 2/D
     Route: 058
     Dates: start: 20090319, end: 20090430
  2. BYETTA [Suspect]
     Dosage: 5 UG, DAILY (1/D)
     Route: 058
     Dates: start: 20090513
  3. LIPITOR [Concomitant]
     Dosage: 10 MG, EACH EVENING
     Route: 048
     Dates: start: 20090413, end: 20090430
  4. ZESTRIL [Concomitant]
     Dosage: 10 MG, DAILY (1/D)
     Route: 048
     Dates: start: 20090413, end: 20090430
  5. METFORMIN HCL [Concomitant]
     Dosage: 1000 MG, 2/D

REACTIONS (2)
  - DEPRESSION [None]
  - SUICIDAL IDEATION [None]
